FAERS Safety Report 4472682-X (Version None)
Quarter: 2004Q4

REPORT INFORMATION
  Report Type: 
  Country: None (occurrence: None)
  Receive Date: 20041013
  Receipt Date: 20041001
  Transmission Date: 20050328
  Serious: Yes (Other)
  Sender: FDA-Public Use
  Company Number: 200417524US

PATIENT
  Sex: Female

DRUGS (2)
  1. TAXOTERE [Suspect]
     Indication: BREAST CANCER
     Dosage: DOSE: UNK
  2. DECADRON [Concomitant]

REACTIONS (3)
  - BRACHIAL PLEXUS INJURY [None]
  - DYSPNOEA [None]
  - NERVE INJURY [None]
